FAERS Safety Report 5959164-0 (Version None)
Quarter: 2008Q4

REPORT INFORMATION
  Report Type: 
  Country: None (occurrence: None)
  Receive Date: 20081120
  Receipt Date: 20080415
  Transmission Date: 20090506
  Serious: No
  Sender: FDA-Public Use
  Company Number: A0722857A

PATIENT
  Age: 27 Year
  Sex: Male

DRUGS (2)
  1. BUPROPION HYDROCHLORIDE [Suspect]
     Indication: BIPOLAR DISORDER
     Dosage: 300MG TWICE PER DAY
     Route: 048
     Dates: start: 20080405, end: 20080413
  2. LITHIUM [Concomitant]

REACTIONS (1)
  - CHEST PAIN [None]
